FAERS Safety Report 5830025-0 (Version None)
Quarter: 2008Q3

REPORT INFORMATION
  Report Type: 
  Country: None (occurrence: None)
  Receive Date: 20080801
  Receipt Date: 20080724
  Transmission Date: 20090109
  Serious: Yes (Death, Hospitalization)
  Sender: FDA-Public Use
  Company Number: GR-ABBOTT-08P-066-0462058-00

PATIENT
  Sex: Female
  Weight: 83.5 kg

DRUGS (7)
  1. ZEMPLAR [Suspect]
     Indication: HYPERPARATHYROIDISM SECONDARY
     Route: 042
     Dates: start: 20080408, end: 20080708
  2. EPOETIN ALFA [Concomitant]
     Indication: ANAEMIA
     Route: 042
     Dates: start: 20071110, end: 20080708
  3. FOLIC ACID [Concomitant]
     Indication: ANAEMIA
     Route: 048
     Dates: start: 20021128, end: 20080708
  4. ACETYLSALICYLIC ACID SRT [Concomitant]
     Indication: ANTICOAGULANT THERAPY
     Route: 048
     Dates: start: 20021128, end: 20080708
  5. TITRALAC [Concomitant]
     Indication: PHOSPHORUS METABOLISM DISORDER
     Route: 048
     Dates: start: 20021128, end: 20080708
  6. ACENOCOUMAROL [Concomitant]
     Indication: ANTICOAGULANT THERAPY
     Route: 048
     Dates: start: 20070719, end: 20080708
  7. ALUCAP [Concomitant]
     Indication: PHOSPHORUS METABOLISM DISORDER
     Route: 048
     Dates: start: 20070821, end: 20080708

REACTIONS (4)
  - CARDIOGENIC SHOCK [None]
  - COUGH [None]
  - HYPOTENSION [None]
  - ORTHOPNOEA [None]
